FAERS Safety Report 19494255 (Version 1)
Quarter: 2021Q3

REPORT INFORMATION
  Report Type: Spontaneous
  Country: GB (occurrence: GB)
  Receive Date: 20210706
  Receipt Date: 20210706
  Transmission Date: 20211014
  Serious: Yes (Other)
  Sender: FDA-Public Use
  Company Number: GB-AUROBINDO-AUR-APL-2021-028468

PATIENT
  Age: 33 Year
  Sex: Female
  Weight: 68.03 kg

DRUGS (9)
  1. SERTRALINE [Concomitant]
     Active Substance: SERTRALINE HYDROCHLORIDE
     Indication: ILL-DEFINED DISORDER
     Dosage: UNK
     Route: 065
  2. ZOPICLONE [Concomitant]
     Active Substance: ZOPICLONE
     Indication: ILL-DEFINED DISORDER
     Dosage: UNK
     Route: 065
  3. PROPRANOLOL [Concomitant]
     Active Substance: PROPRANOLOL HYDROCHLORIDE
     Indication: ILL-DEFINED DISORDER
     Dosage: UNK
     Route: 065
  4. COD LIVER OIL [Concomitant]
     Active Substance: COD LIVER OIL
     Indication: ILL-DEFINED DISORDER
     Dosage: UNK
     Route: 065
  5. TRAZODONE [Concomitant]
     Active Substance: TRAZODONE HYDROCHLORIDE
     Indication: ILL-DEFINED DISORDER
  6. MIRTAZAPINE. [Suspect]
     Active Substance: MIRTAZAPINE
     Indication: ILL-DEFINED DISORDER
     Dosage: 30MG REDUCED TO 15MG FOR 2 WEEKS
     Route: 048
     Dates: start: 20200201
  7. FOSTAIR [Concomitant]
     Active Substance: BECLOMETHASONE\FORMOTEROL
     Indication: ILL-DEFINED DISORDER
     Dosage: UNK
     Route: 065
  8. COVID?19 VACCINE MRNA [Concomitant]
     Indication: ILL-DEFINED DISORDER
     Dosage: UNK
     Route: 065
  9. TERBUTALINE [Concomitant]
     Active Substance: TERBUTALINE
     Indication: ILL-DEFINED DISORDER
     Dosage: UNK
     Route: 065

REACTIONS (1)
  - Insomnia [Not Recovered/Not Resolved]

NARRATIVE: CASE EVENT DATE: 20210613
